FAERS Safety Report 4538265-8 (Version None)
Quarter: 2004Q4

REPORT INFORMATION
  Report Type: 
  Country: None (occurrence: None)
  Receive Date: 20041223
  Receipt Date: 20041223
  Transmission Date: 20050328
  Serious: Yes (Other)
  Sender: FDA-Public Use
  Company Number: None

PATIENT
  Sex: Male

DRUGS (1)
  1. OMNIPAQUE 300 [Suspect]
     Dosage: 150 ML ONE TIME INTRAVENOUS
     Route: 042

REACTIONS (1)
  - THROAT IRRITATION [None]
